FAERS Safety Report 15760405 (Version 3)
Quarter: 2019Q4

REPORT INFORMATION
  Report Type: Report from Study
  Country: US (occurrence: US)
  Receive Date: 20181226
  Receipt Date: 20191126
  Transmission Date: 20200122
  Serious: Yes (Other)
  Sender: FDA-Public Use
  Company Number: PHHY2018US160274

PATIENT
  Age: 51 Year
  Sex: Female

DRUGS (1)
  1. GILENYA [Suspect]
     Active Substance: FINGOLIMOD HYDROCHLORIDE
     Indication: MULTIPLE SCLEROSIS
     Dosage: UNK UNK, QD
     Route: 048

REACTIONS (9)
  - Blood cholesterol increased [Unknown]
  - Contusion [Unknown]
  - Low density lipoprotein increased [Unknown]
  - Muscle atrophy [Unknown]
  - Muscle spasticity [Unknown]
  - White blood cell count increased [Unknown]
  - High density lipoprotein increased [Unknown]
  - Alanine aminotransferase increased [Unknown]
  - Hypotonia [Unknown]

NARRATIVE: CASE EVENT DATE: 20180806
